FAERS Safety Report 13137528 (Version 4)
Quarter: 2018Q2

REPORT INFORMATION
  Report Type: Spontaneous
  Country: US (occurrence: US)
  Receive Date: 20170123
  Receipt Date: 20180616
  Transmission Date: 20180711
  Serious: Yes (Disabling, Other)
  Sender: FDA-Public Use
  Company Number: US-ASTRAZENECA-2017SE03693

PATIENT
  Age: 14266 Day
  Sex: Male
  Weight: 154.2 kg

DRUGS (28)
  1. PRILOSEC [Suspect]
     Active Substance: OMEPRAZOLE MAGNESIUM
     Route: 048
     Dates: start: 2001
  2. VERAPAMIL [Concomitant]
     Active Substance: VERAPAMIL HYDROCHLORIDE
  3. BUPROPION HYDROCHLORIDE. [Concomitant]
     Active Substance: BUPROPION HYDROCHLORIDE
  4. NORVASC [Concomitant]
     Active Substance: AMLODIPINE BESYLATE
     Indication: HYPERTENSION
  5. ALLOPURINOL. [Concomitant]
     Active Substance: ALLOPURINOL
     Indication: NEPHROPATHY
  6. PHENERGAN [Concomitant]
     Active Substance: PROMETHAZINE HYDROCHLORIDE
     Indication: NAUSEA
  7. LEVAQUIN [Concomitant]
     Active Substance: LEVOFLOXACIN
     Dosage: 750.0MG UNKNOWN
  8. FOSINOPRIL SODIUM. [Concomitant]
     Active Substance: FOSINOPRIL SODIUM
     Dosage: 40.0MG UNKNOWN
  9. ANDROGEL [Concomitant]
     Active Substance: TESTOSTERONE
  10. LOPERAMIDE [Concomitant]
     Active Substance: LOPERAMIDE
     Indication: DIARRHOEA
     Dates: start: 201804
  11. NORCO [Concomitant]
     Active Substance: ACETAMINOPHEN\HYDROCODONE BITARTRATE
     Indication: PAIN
  12. AMITRIPTYLINE [Concomitant]
     Active Substance: AMITRIPTYLINE
     Indication: DIABETIC NEUROPATHY
     Dates: start: 2002
  13. NOVOLOG [Concomitant]
     Active Substance: INSULIN ASPART
  14. CARVEDILOL. [Concomitant]
     Active Substance: CARVEDILOL
  15. FUROSEMIDE. [Concomitant]
     Active Substance: FUROSEMIDE
     Dosage: 40.0MG UNKNOWN
  16. METFORMIN HYDROCHLORIDE. [Concomitant]
     Active Substance: METFORMIN HYDROCHLORIDE
  17. HYDROCODONE-APAP [Concomitant]
     Active Substance: ACETAMINOPHEN\HYDROCODONE
  18. KLOR-CON [Concomitant]
     Active Substance: POTASSIUM CHLORIDE
  19. IBUPROFEN. [Concomitant]
     Active Substance: IBUPROFEN
  20. PROBIOTICS [Concomitant]
     Active Substance: PROBIOTICS NOS
     Indication: ANTIBODY TEST ABNORMAL
     Dates: end: 2016
  21. TYLENOL [Concomitant]
     Active Substance: ACETAMINOPHEN
     Indication: ARTHRITIS
  22. THALITONE [Concomitant]
     Active Substance: CHLORTHALIDONE
     Indication: CHRONIC KIDNEY DISEASE
     Dates: start: 2014
  23. LEVOTHYROXINE. [Concomitant]
     Active Substance: LEVOTHYROXINE
     Indication: THYROID DISORDER
     Dates: start: 2013
  24. AMITRIPTYLINE HYDROCHLORIDE. [Concomitant]
     Active Substance: AMITRIPTYLINE HYDROCHLORIDE
  25. LYRICA [Concomitant]
     Active Substance: PREGABALIN
     Indication: DIABETIC NEUROPATHY
  26. NEXIUM [Suspect]
     Active Substance: ESOMEPRAZOLE MAGNESIUM
     Route: 048
     Dates: start: 200108, end: 2016
  27. COREG [Concomitant]
     Active Substance: CARVEDILOL
     Indication: HYPERTENSION
     Dates: start: 2003
  28. CEFDINIR. [Concomitant]
     Active Substance: CEFDINIR

REACTIONS (2)
  - Chronic kidney disease [Unknown]
  - Acute kidney injury [Unknown]

NARRATIVE: CASE EVENT DATE: 20100118
